FAERS Safety Report 12434338 (Version 1)
Quarter: 2016Q2

REPORT INFORMATION
  Report Type: Spontaneous
  Country: JP (occurrence: JP)
  Receive Date: 20160603
  Receipt Date: 20160603
  Transmission Date: 20160815
  Serious: Yes (Other)
  Sender: FDA-Public Use
  Company Number: JP-WATSON-2016-11292

PATIENT
  Age: 52 Year
  Sex: Male
  Weight: 51 kg

DRUGS (1)
  1. PREDNISOLONE (UNKNOWN) [Suspect]
     Active Substance: PREDNISOLONE
     Indication: SARCOIDOSIS
     Dosage: 40 MG, DAILY
     Route: 048

REACTIONS (1)
  - Substance-induced psychotic disorder [Recovered/Resolved]
